FAERS Safety Report 24692028 (Version 1)
Quarter: 2024Q4

REPORT INFORMATION
  Report Type: Spontaneous
  Country: CN (occurrence: CN)
  Receive Date: 20241203
  Receipt Date: 20241203
  Transmission Date: 20250115
  Serious: Yes (Hospitalization)
  Sender: ROCHE
  Company Number: CN-BoehringerIngelheim-2024-BI-065423

PATIENT
  Age: 75 Year
  Sex: Female
  Weight: 50 kg

DRUGS (2)
  1. ALTEPLASE [Suspect]
     Active Substance: ALTEPLASE
     Indication: Thrombolysis
     Route: 042
     Dates: start: 20241107, end: 20241107
  2. ALTEPLASE [Suspect]
     Active Substance: ALTEPLASE
     Dosage: IV PUMP INFUSION WITH MICRO-PUMP
     Route: 042
     Dates: start: 20241107, end: 20241107

REACTIONS (2)
  - Haemorrhagic transformation stroke [Recovering/Resolving]
  - Muscular weakness [Recovering/Resolving]

NARRATIVE: CASE EVENT DATE: 20241107
